FAERS Safety Report 19026963 (Version 5)
Quarter: 2021Q2

REPORT INFORMATION
  Report Type: Spontaneous
  Country: US (occurrence: US)
  Receive Date: 20210318
  Receipt Date: 20210510
  Transmission Date: 20210717
  Serious: Yes (Death, Hospitalization, Other)
  Sender: FDA-Public Use
  Company Number: US-GW PHARMA-202103USGW01138

PATIENT

DRUGS (3)
  1. PERAMPANEL [Concomitant]
     Active Substance: PERAMPANEL
     Indication: EPILEPSY
     Dosage: 6 MILLIGRAM, QD (BEDTIME)
     Route: 065
  2. DIASTAT [DIAZEPAM] [Concomitant]
     Indication: SEIZURE
     Dosage: 5 MILLIGRAM, PRN
     Route: 045
  3. EPIDIOLEX [Suspect]
     Active Substance: CANNABIDIOL
     Indication: LENNOX-GASTAUT SYNDROME
     Dosage: 250 MILLIGRAM, BID
     Route: 048
     Dates: start: 202001, end: 20210317

REACTIONS (4)
  - Respiratory failure [Fatal]
  - Pneumonia [Fatal]
  - Seizure [Recovered/Resolved]
  - Oxygen saturation decreased [Not Recovered/Not Resolved]

NARRATIVE: CASE EVENT DATE: 202103
